FAERS Safety Report 7670997-5 (Version None)
Quarter: 2011Q3

REPORT INFORMATION
  Report Type: 
  Country: None (occurrence: None)
  Receive Date: 20110809
  Receipt Date: 20110729
  Transmission Date: 20111222
  Serious: Yes (Death, Other)
  Sender: FDA-Public Use
  Company Number: US-BAYER-200939866NA

PATIENT
  Age: 70 Year
  Sex: Female
  Weight: 72.562 kg

DRUGS (22)
  1. ZOCOR [Concomitant]
     Dosage: 20 MG, QD
     Route: 048
  2. PAPAVERINE [PAPAVERINE] [Concomitant]
     Dosage: 300 MG, UNK
     Route: 042
     Dates: start: 20061017
  3. INSULIN HUMAN [Concomitant]
     Dosage: 12
     Route: 042
     Dates: start: 20061017
  4. DOPAMINE HCL [Concomitant]
     Dosage: UNK
     Route: 042
     Dates: start: 20061017
  5. LOVENOX [Concomitant]
     Dosage: 90 MG, BID
     Route: 058
  6. ACETYLSALICYLIC ACID SRT [Concomitant]
     Dosage: 81 MG, QD
     Route: 048
  7. INSULIN HUMAN [Concomitant]
     Route: 058
  8. HEPARIN [Concomitant]
     Dosage: 30000 U, UNK
     Route: 042
     Dates: start: 20061017
  9. LIDOCAINE [Concomitant]
     Dosage: 100 MG, UNK
     Route: 042
     Dates: start: 20061017
  10. TOPROL-XL [Concomitant]
     Dosage: 50 MG, QD
     Route: 048
  11. LIPITOR [Concomitant]
     Dosage: 10 MG, QD
     Route: 048
  12. TRASYLOL [Suspect]
     Indication: CORONARY ARTERY BYPASS
     Dosage: UNK
     Route: 042
     Dates: start: 20061016
  13. LASIX [Concomitant]
  14. GLIPIZIDE [Concomitant]
     Dosage: 10 MG, BID
     Route: 048
  15. HYDROCHLOROTHIAZIDE [Concomitant]
     Dosage: 25 MG, QD
     Route: 048
  16. NORVASC [Concomitant]
     Dosage: 10 MG, QD
     Route: 048
  17. LISINOPRIL [Concomitant]
     Dosage: 40 MG, QD
     Route: 048
  18. SYNTHROID [Concomitant]
     Dosage: 75 MCG DAILY
     Route: 048
  19. PROTAMINE [Concomitant]
     Dosage: 300
     Route: 042
     Dates: start: 20061017
  20. CEFAZOLIN [Concomitant]
     Dosage: 4 G, UNK
     Route: 042
     Dates: start: 20061017
  21. NITROGLYCERIN [Concomitant]
     Dosage: 10MCG/MINUTE
     Route: 042
     Dates: start: 20061013
  22. INTEGRILIN [Concomitant]
     Dosage: 2 MCG/KG/MINUTE
     Route: 042
     Dates: start: 20061013

REACTIONS (13)
  - RENAL IMPAIRMENT [None]
  - EMOTIONAL DISTRESS [None]
  - ANXIETY [None]
  - RENAL FAILURE [None]
  - UNEVALUABLE EVENT [None]
  - ANHEDONIA [None]
  - DEATH [None]
  - RENAL INJURY [None]
  - STRESS [None]
  - FEAR [None]
  - INJURY [None]
  - MULTI-ORGAN FAILURE [None]
  - PAIN [None]
